FAERS Safety Report 9738926 (Version 3)
Quarter: 2014Q1

REPORT INFORMATION
  Report Type: Report from Study
  Country: FR (occurrence: FR)
  Receive Date: 20131209
  Receipt Date: 20140204
  Transmission Date: 20141002
  Serious: Yes (Hospitalization)
  Sender: FDA-Public Use
  Company Number: FR-BAYER-2013-033626

PATIENT
  Age: 68 Year
  Sex: Male
  Weight: 68.7 kg

DRUGS (13)
  1. REGORAFENIB [Suspect]
     Indication: COLORECTAL CANCER METASTATIC
     Dosage: DAILY DOSE 160 MG
     Route: 048
     Dates: start: 20130202, end: 20130203
  2. REGORAFENIB [Suspect]
     Indication: COLORECTAL CANCER METASTATIC
     Dosage: DAILY DOSE 120 MG
     Route: 048
     Dates: start: 20130204, end: 20130204
  3. REGORAFENIB [Suspect]
     Indication: COLORECTAL CANCER METASTATIC
     Dosage: DAILY DOSE 160 MG
     Route: 048
     Dates: start: 20130205, end: 20130211
  4. REGORAFENIB [Suspect]
     Indication: COLORECTAL CANCER METASTATIC
     Dosage: DAILY DOSE 120 MG
     Route: 048
     Dates: start: 20130212, end: 20130222
  5. REGORAFENIB [Suspect]
     Indication: COLORECTAL CANCER METASTATIC
     Dosage: DAILY DOSE 80 MG
     Route: 048
     Dates: start: 20130302, end: 20130309
  6. KENZEN [Concomitant]
     Indication: HYPERTENSION
     Dosage: DAILY DOSE 8 MG
     Route: 048
     Dates: start: 20130212
  7. CARDENSIEL [Concomitant]
     Indication: HYPERTENSION
     Dosage: DAILY DOSE 2.5 MG
     Route: 048
     Dates: start: 20130212
  8. SOLUPRED [PREDNISOLONE] [Concomitant]
     Indication: DYSPNOEA
     Dosage: DAILY DOSE 40 MG
     Route: 048
     Dates: start: 20130221, end: 20130311
  9. OXYCONTIN [Concomitant]
     Indication: BACK PAIN
     Dosage: DAILY DOSE 160 MG
     Route: 048
     Dates: start: 20130228
  10. OXYNORM [Concomitant]
     Indication: BACK PAIN
     Dosage: UNK UNK, PRN
     Route: 048
     Dates: start: 20130228
  11. PARACETAMOL [Concomitant]
     Indication: BACK PAIN
     Dosage: DAILY DOSE 3 G
     Route: 048
     Dates: start: 20130228
  12. NEURONTIN [Concomitant]
     Indication: BACK PAIN
     Dosage: DAILY DOSE 1.2 G
     Route: 048
     Dates: start: 20130228
  13. TRANSIPEG [MACROGOL] [Concomitant]
     Indication: CONSTIPATION PROPHYLAXIS
     Dosage: DAILY DOSE 11.8 G
     Route: 048
     Dates: start: 20130228

REACTIONS (1)
  - General physical health deterioration [Recovered/Resolved]
